FAERS Safety Report 7776119-4 (Version None)
Quarter: 2011Q3

REPORT INFORMATION
  Report Type: 
  Country: None (occurrence: None)
  Receive Date: 20110925
  Receipt Date: 20090323
  Transmission Date: 20111222
  Serious: Yes (Other)
  Sender: FDA-Public Use
  Company Number: PHHY2010TW67658

PATIENT
  Sex: Male

DRUGS (2)
  1. GLEEVEC [Suspect]
     Dosage: 400 MG, UNK
     Route: 048
     Dates: start: 20100901
  2. GLEEVEC [Suspect]
     Indication: GASTROINTESTINAL STROMAL TUMOUR
     Dosage: 400 MG, UNK
     Dates: start: 20060101

REACTIONS (6)
  - POLLAKIURIA [None]
  - INFLAMMATION [None]
  - ABDOMINAL TENDERNESS [None]
  - GASTROINTESTINAL STROMAL TUMOUR [None]
  - NEUROFIBROMATOSIS [None]
  - NEOPLASM MALIGNANT [None]
